FAERS Safety Report 10693308 (Version 3)
Quarter: 2015Q1

REPORT INFORMATION
  Report Type: Spontaneous
  Country: VE (occurrence: VE)
  Receive Date: 20150106
  Receipt Date: 20150130
  Transmission Date: 20150720
  Serious: Yes (Other)
  Sender: FDA-Public Use
  Company Number: PHHY2014VE170812

PATIENT
  Age: 60 Year
  Sex: Male

DRUGS (2)
  1. LEPONEX [Suspect]
     Active Substance: CLOZAPINE
     Indication: SCHIZOPHRENIA, PARANOID TYPE
     Dosage: 400 MG, QD
     Route: 048
     Dates: start: 2007, end: 201409
  2. LEPONEX [Suspect]
     Active Substance: CLOZAPINE
     Indication: SCHIZOPHRENIA
     Dosage: 400 MG, QD
     Route: 048
     Dates: start: 201412

REACTIONS (7)
  - Abnormal behaviour [Recovered/Resolved]
  - Schizophrenia [Recovered/Resolved]
  - Sleep disorder [Recovered/Resolved]
  - Mental disorder [Recovered/Resolved]
  - Emotional disorder [Recovered/Resolved]
  - Insomnia [Recovered/Resolved]
  - Bronchitis [Recovered/Resolved]

NARRATIVE: CASE EVENT DATE: 201409
